FAERS Safety Report 8074769-1 (Version None)
Quarter: 2012Q1

REPORT INFORMATION
  Report Type: 
  Country: None (occurrence: None)
  Receive Date: 20120126
  Receipt Date: 20120123
  Transmission Date: 20120608
  Serious: No
  Sender: FDA-Public Use
  Company Number: US-PFIZER INC-2012019166

PATIENT
  Sex: Female
  Weight: 79.4 kg

DRUGS (3)
  1. BENICAR [Concomitant]
     Indication: HYPERTENSION
     Dosage: 20 MG, DAILY
  2. CHANTIX [Suspect]
     Dosage: UNK
     Route: 048
     Dates: start: 20120101, end: 20120101
  3. CHANTIX [Suspect]
     Indication: SMOKING CESSATION THERAPY
     Dosage: 0.5 MG, DAILY
     Route: 048
     Dates: start: 20120101, end: 20120101

REACTIONS (1)
  - STRESS [None]
